FAERS Safety Report 6672890-3 (Version None)
Quarter: 2010Q2

REPORT INFORMATION
  Report Type: 
  Country: None (occurrence: None)
  Receive Date: 20100406
  Receipt Date: 20100322
  Transmission Date: 20101027
  Serious: Yes (Hospitalization, Other)
  Sender: FDA-Public Use
  Company Number: TRP_06848_2010

PATIENT
  Sex: Female
  Weight: 63 kg

DRUGS (7)
  1. INFERGEN [Suspect]
     Indication: HEPATITIS C
     Dosage: (15 UG QD SUBCUTANEOUS)
     Route: 058
     Dates: start: 20100301, end: 20100311
  2. RIBAVIRIN [Suspect]
     Indication: HEPATITIS C
     Dosage: (600 MG BID [DISCREPANT; 600 MG QAM AND 400 MG QPM PER HOSPITALIST] ORAL), (DF)
     Route: 048
     Dates: start: 20100301, end: 20100311
  3. INTERFERON [Suspect]
     Indication: HEPATITIS C
     Dosage: (DF)
  4. PREMARIN [Concomitant]
  5. FIORICET [Concomitant]
  6. TOPROL-XL [Concomitant]
  7. REQUIP [Concomitant]

REACTIONS (23)
  - ANXIETY [None]
  - BLOOD GLUCOSE INCREASED [None]
  - BLOOD PRESSURE INCREASED [None]
  - CHEST PAIN [None]
  - CHILLS [None]
  - CONDITION AGGRAVATED [None]
  - DECREASED APPETITE [None]
  - DRUG HYPERSENSITIVITY [None]
  - DYSPNOEA EXERTIONAL [None]
  - HEART RATE INCREASED [None]
  - LEUKOPENIA [None]
  - MONOCYTE COUNT INCREASED [None]
  - NAUSEA [None]
  - PRURITUS [None]
  - PYREXIA [None]
  - RASH [None]
  - RED BLOOD CELL COUNT DECREASED [None]
  - RESPIRATORY ALKALOSIS [None]
  - RESPIRATORY DISTRESS [None]
  - RESPIRATORY RATE INCREASED [None]
  - THROMBOCYTOPENIA [None]
  - TREATMENT FAILURE [None]
  - WEIGHT DECREASED [None]
